FAERS Safety Report 5457195-0 (Version None)
Quarter: 2007Q3

REPORT INFORMATION
  Report Type: 
  Country: None (occurrence: None)
  Receive Date: 20070918
  Receipt Date: 20070125
  Transmission Date: 20080115
  Serious: No
  Sender: FDA-Public Use
  Company Number: US-ASTRAZENECA-2007UW01538

PATIENT
  Age: 46 Year
  Sex: Female

DRUGS (5)
  1. SEROQUEL [Suspect]
     Indication: BIPOLAR DISORDER
     Route: 048
  2. LITHIUM CARBONATE [Concomitant]
  3. CYMBALTA [Concomitant]
  4. SYNTHROID [Concomitant]
  5. LISINOPRIL [Concomitant]

REACTIONS (5)
  - BLOOD FOLLICLE STIMULATING HORMONE DECREASED [None]
  - CONSTIPATION [None]
  - MENOPAUSE [None]
  - MENSTRUAL DISORDER [None]
  - MENSTRUATION IRREGULAR [None]
